FAERS Safety Report 6287537-8 (Version None)
Quarter: 2009Q3

REPORT INFORMATION
  Report Type: 
  Country: None (occurrence: None)
  Receive Date: 20090727
  Receipt Date: 20090622
  Transmission Date: 20100115
  Serious: Yes (Hospitalization)
  Sender: FDA-Public Use
  Company Number: 8047037

PATIENT
  Age: 49 Year
  Sex: Male
  Weight: 106.8 kg

DRUGS (1)
  1. CIMZIA [Suspect]
     Dosage: 400 MG/M SC
     Route: 058
     Dates: start: 20081031

REACTIONS (8)
  - CONDITION AGGRAVATED [None]
  - CROHN'S DISEASE [None]
  - DEHYDRATION [None]
  - INSOMNIA [None]
  - MUSCLE SPASMS [None]
  - NAUSEA [None]
  - WEIGHT DECREASED [None]
  - WEIGHT INCREASED [None]
